FAERS Safety Report 9149988 (Version 1)
Quarter: 2013Q1

REPORT INFORMATION
  Report Type: Report from Study
  Country: JP (occurrence: JP)
  Receive Date: 20130308
  Receipt Date: 20130308
  Transmission Date: 20140127
  Serious: Yes (Hospitalization)
  Sender: FDA-Public Use
  Company Number: JP-SANOFI-AVENTIS-2013SA020652

PATIENT
  Age: 78 Year
  Sex: Male
  Weight: 44 kg

DRUGS (11)
  1. PLAVIX [Suspect]
     Indication: ANGINA UNSTABLE
     Route: 065
     Dates: start: 20120119, end: 20120214
  2. PLAVIX [Suspect]
     Indication: ANGINA UNSTABLE
     Route: 065
     Dates: start: 20120215
  3. BAYASPIRIN [Concomitant]
     Indication: ANGINA UNSTABLE
     Dates: start: 20120118
  4. ENALAPRIL MALEATE [Concomitant]
     Dates: start: 20120118, end: 20120221
  5. SPIRONOLACTONE [Concomitant]
     Dates: start: 20120118
  6. SIGMART [Concomitant]
     Indication: ANGINA UNSTABLE
     Dates: start: 20120118, end: 20120221
  7. FUROSEMIDE [Concomitant]
     Dates: start: 20120118, end: 20120207
  8. RABEPRAZOLE [Concomitant]
     Dates: start: 20120118
  9. LIPITOR [Concomitant]
     Dates: start: 20120118, end: 20120221
  10. ALLOPURINOL [Concomitant]
     Dates: start: 20120118, end: 20120221
  11. FERROMIA [Concomitant]
     Dates: start: 20120118, end: 20120207

REACTIONS (1)
  - Dehydration [Recovered/Resolved]
